FAERS Safety Report 8608750 (Version 10)
Quarter: 2013Q3

REPORT INFORMATION
  Report Type: Report from Study
  Country: JP (occurrence: JP)
  Receive Date: 20120611
  Receipt Date: 20130902
  Transmission Date: 20140515
  Serious: Yes (Hospitalization)
  Sender: FDA-Public Use
  Company Number: JP-PFIZER INC-2012136525

PATIENT
  Age: 53 Year
  Sex: Female
  Weight: 45.7 kg

DRUGS (7)
  1. XALKORI [Suspect]
     Indication: NON-SMALL CELL LUNG CANCER
     Dosage: 250 MG, 2X/DAY
     Route: 048
     Dates: start: 20120522, end: 20120605
  2. BROCIN-CODEINE [Concomitant]
     Dosage: 2 ML, AS NEEDED
     Route: 048
     Dates: start: 20120521, end: 20120724
  3. CRAVIT [Concomitant]
     Dosage: 500 MG, 1X/DAY
     Route: 065
     Dates: start: 20120602
  4. SENNOSIDE [Concomitant]
     Indication: CONSTIPATION
     Dosage: 24 MG, AS NEEDED
     Route: 065
     Dates: start: 20120525, end: 20120724
  5. NAUZELIN [Concomitant]
     Dosage: 30 MG, UNK
     Route: 054
     Dates: start: 20120523, end: 20120724
  6. NOVAMIN [Concomitant]
     Dosage: 5 MG, 3X/DAY
     Route: 048
     Dates: start: 20120523
  7. PRIMPERAN [Concomitant]
     Dosage: 5 MG, 3X/DAY
     Route: 048
     Dates: start: 20120522

REACTIONS (1)
  - Interstitial lung disease [Recovered/Resolved]
